FAERS Safety Report 6152213-9 (Version None)
Quarter: 2009Q2

REPORT INFORMATION
  Report Type: 
  Country: None (occurrence: None)
  Receive Date: 20090410
  Receipt Date: 20080602
  Transmission Date: 20091009
  Serious: No
  Sender: FDA-Public Use
  Company Number: US-ASTRAZENECA-2008UW11105

PATIENT
  Age: 88 Year
  Sex: Female

DRUGS (6)
  1. ATENOLOL [Suspect]
     Route: 048
  2. MELATONIN [Suspect]
  3. DIGOXIN [Concomitant]
  4. COUMADIN [Concomitant]
  5. DARVOCET [Concomitant]
     Dosage: Q4-6 HRS
  6. ZETIA [Concomitant]

REACTIONS (1)
  - TINNITUS [None]
